FAERS Safety Report 9126523 (Version 1)
Quarter: 2013Q1

REPORT INFORMATION
  Report Type: Spontaneous
  Country: US (occurrence: US)
  Receive Date: 20130117
  Receipt Date: 20130117
  Transmission Date: 20140127
  Serious: Yes (Hospitalization)
  Sender: FDA-Public Use
  Company Number: US-BAYER-2013-004520

PATIENT
  Age: 32 Year
  Sex: Female
  Weight: 146.3 kg

DRUGS (29)
  1. YASMIN [Suspect]
  2. OCELLA [Suspect]
  3. CEPHALEXIN [Concomitant]
     Dosage: 500 MG, QID
     Route: 048
  4. IBUPROFEN [Concomitant]
     Dosage: UNK UNK, PRN
  5. TESSALON PERLE [Concomitant]
     Indication: COUGH
     Dosage: UNK UNK, TID
     Route: 048
  6. ALBUTEROL [Concomitant]
     Dosage: 90 MCG/ ACTUATION
     Route: 048
  7. PREVACID [Concomitant]
     Dosage: 30 MG,
     Route: 048
  8. ZITHROMAX [Concomitant]
     Indication: BRONCHITIS
     Dosage: 250 MG, UNK
     Route: 048
  9. LEVAQUIN [Concomitant]
     Dosage: 500 MG, UNK
     Route: 048
     Dates: start: 20090513
  10. LEVAQUIN [Concomitant]
     Dosage: 750 MG, QD, 5 DAYS
     Route: 048
  11. MUCINEX [Concomitant]
  12. TYLENOL SINUS [Concomitant]
  13. CYCLOBENZAPRINE [Concomitant]
     Dosage: 10 MG, TID, PRN
     Route: 048
  14. PHENERGAN [Concomitant]
     Indication: COUGH
     Dosage: 25 MG, UNK
     Route: 048
  15. DELTASONE [Concomitant]
     Indication: ASTHMA
     Dosage: 20 MG, UNK
     Route: 048
  16. SODIUM CHLORIDE [Concomitant]
     Indication: ACUTE SINUSITIS
     Dosage: 0.65 % BOTH NOSTRILS, Q3HR
     Route: 045
  17. PROPOXYPHENE/ACETAMINOPHEN [Concomitant]
     Indication: SPINAL PAIN
     Dosage: 100-650 MG, Q 6 HOUR PRN
     Route: 048
  18. VISTARIL [Concomitant]
     Indication: SPINAL PAIN
     Dosage: 25 MG/ML, ONCE
     Route: 030
  19. TORADOL [Concomitant]
     Indication: SPINAL PAIN
     Dosage: 30 MG/ML, ONCE
     Route: 030
  20. PROVENTIL [Concomitant]
  21. SINGULAIR [Concomitant]
     Dosage: 10 MG, HS
     Route: 048
  22. ADVAIR [Concomitant]
     Dosage: 250/50 1 PUFF DAILY
     Route: 045
  23. ROCEPHIN [Concomitant]
     Indication: PNEUMONIA
     Dosage: 1 GRAM FOR 1 DOSE
     Route: 042
  24. ROCEPHIN [Concomitant]
     Indication: LEUKOCYTOSIS
  25. METHYLPREDNISOLONE SODIUM SUCCINATE [Concomitant]
     Indication: DYSPNOEA
     Dosage: 125 MG/2 ML FOR 1 DOSE
     Route: 042
  26. METHYLPREDNISOLONE SODIUM SUCCINATE [Concomitant]
     Indication: RESPIRATORY DISORDER
  27. ALBUTEROL W/IPRATROPIUM [Concomitant]
     Indication: DYSPNOEA
     Dosage: 0.5-2.5 MG/3ML FOR 1 DOSE
     Route: 045
  28. NORMAL SALINE [Concomitant]
     Indication: PNEUMONIA
     Dosage: 0.9 %, 1000 ML
     Route: 042
  29. METHYLPREDNISOLONE [Concomitant]
     Dosage: 4 MG, UNK
     Route: 048

REACTIONS (1)
  - Pulmonary embolism [None]
